FAERS Safety Report 14081993 (Version 1)
Quarter: 2017Q4

REPORT INFORMATION
  Report Type: Report from Study
  Country: None (occurrence: US)
  Receive Date: 20171013
  Receipt Date: 20171013
  Transmission Date: 20180321
  Serious: No
  Sender: FDA-Public Use
  Company Number: US-BIOGEN-2017BV000344

PATIENT
  Sex: Male

DRUGS (1)
  1. ALPROLIX [Suspect]
     Active Substance: EFTRENONACOG ALFA
     Indication: HAEMOPHILIA
     Dosage: UNKNOWN
     Route: 065

REACTIONS (3)
  - Blood testosterone decreased [Recovered/Resolved]
  - Emotional disorder [Recovered/Resolved]
  - Erectile dysfunction [Recovered/Resolved]
